FAERS Safety Report 11518327 (Version 1)
Quarter: 2015Q3

REPORT INFORMATION
  Report Type: Spontaneous
  Country: CA (occurrence: CA)
  Receive Date: 20150917
  Receipt Date: 20150917
  Transmission Date: 20151125
  Serious: Yes (Other)
  Sender: FDA-Public Use
  Company Number: CA-ACTELION-A-US2015-123629

PATIENT
  Sex: Male

DRUGS (2)
  1. CEREZYME [Concomitant]
     Active Substance: IMIGLUCERASE
     Dosage: UNK
  2. ZAVESCA [Suspect]
     Active Substance: MIGLUSTAT
     Indication: GAUCHER^S DISEASE TYPE III
     Dosage: UNK
     Route: 048

REACTIONS (6)
  - Malnutrition [Unknown]
  - Protein-losing gastroenteropathy [Unknown]
  - Diarrhoea [Unknown]
  - Lymph node calcification [Unknown]
  - Blood albumin decreased [Unknown]
  - Abdominal lymphadenopathy [Unknown]
